FAERS Safety Report 11056061 (Version 1)
Quarter: 2015Q2

REPORT INFORMATION
  Report Type: Report from Study
  Country: CO (occurrence: CO)
  Receive Date: 20150422
  Receipt Date: 20150422
  Transmission Date: 20150821
  Serious: Yes (Hospitalization)
  Sender: FDA-Public Use
  Company Number: CO-BAYER-2015-131932

PATIENT
  Age: 63 Year
  Sex: Female

DRUGS (2)
  1. BETAFERON [Suspect]
     Active Substance: INTERFERON BETA-1B
     Indication: MULTIPLE SCLEROSIS
     Dosage: 1 DF, QOD
     Route: 058
     Dates: start: 20150411
  2. BETAFERON [Suspect]
     Active Substance: INTERFERON BETA-1B
     Indication: MULTIPLE SCLEROSIS
     Dosage: 1 DF, QOD
     Route: 058
     Dates: start: 20030601

REACTIONS (8)
  - Decreased appetite [None]
  - Asthenia [None]
  - Anxiety [None]
  - Weight decreased [None]
  - Blood potassium decreased [None]
  - Altered state of consciousness [None]
  - Vomiting [Recovered/Resolved]
  - Confusional state [None]

NARRATIVE: CASE EVENT DATE: 2015
